FAERS Safety Report 17865482 (Version 1)
Quarter: 2020Q2

REPORT INFORMATION
  Report Type: Spontaneous
  Country: US (occurrence: US)
  Receive Date: 20200605
  Receipt Date: 20200605
  Transmission Date: 20200714
  Serious: No
  Sender: FDA-Public Use
  Company Number: None

PATIENT
  Age: 29 Year
  Sex: Female
  Weight: 95.5 kg

DRUGS (1)
  1. REMDESIVIR 100MG IV IN 100ML NS [Suspect]
     Active Substance: REMDESIVIR
     Indication: COVID-19
     Route: 041
     Dates: start: 20200530, end: 20200604

REACTIONS (1)
  - Device delivery system issue [None]

NARRATIVE: CASE EVENT DATE: 20200602
